FAERS Safety Report 5092238-8 (Version None)
Quarter: 2006Q3

REPORT INFORMATION
  Report Type: 
  Country: None (occurrence: None)
  Receive Date: 20060824
  Receipt Date: 20060814
  Transmission Date: 20061208
  Serious: Yes (Hospitalization)
  Sender: FDA-Public Use
  Company Number: 2006BI001298

PATIENT
  Sex: Female

DRUGS (2)
  1. AVONEX [Suspect]
     Indication: MULTIPLE SCLEROSIS
     Dosage: 30 UG;QW;IM
     Route: 030
     Dates: start: 19960101, end: 20030101
  2. AVONEX [Suspect]
     Indication: MULTIPLE SCLEROSIS
     Dosage: 30 UG;QW;IM
     Route: 030
     Dates: start: 20030101, end: 20060401

REACTIONS (9)
  - ANKLE FRACTURE [None]
  - BALANCE DISORDER [None]
  - ECONOMIC PROBLEM [None]
  - FALL [None]
  - FIBULA FRACTURE [None]
  - PAIN [None]
  - SKIN GRAFT [None]
  - TIBIA FRACTURE [None]
  - WOUND INFECTION [None]
